FAERS Safety Report 24710904 (Version 1)
Quarter: 2024Q4

REPORT INFORMATION
  Report Type: Spontaneous
  Country: US (occurrence: US)
  Receive Date: 20241209
  Receipt Date: 20241209
  Transmission Date: 20250115
  Serious: No
  Sender: Unknown Manufacturer
  Company Number: US-STALCOR-2024-AER-02699

PATIENT
  Age: 5 Year
  Sex: Male
  Weight: 16.6 kg

DRUGS (5)
  1. PALFORZIA [Suspect]
     Active Substance: PEANUT
     Indication: Food allergy
     Dosage: REACTIVE DOSE, LAST DOSE PRIOR TO ONSET OF REPORTED EVENTS
     Route: 048
     Dates: start: 20241120
  2. PALFORZIA [Suspect]
     Active Substance: PEANUT
     Dosage: DOSE REDUCED /RE TITRATED TO 240MG IN RESPONSE TO THE REPORTED EVENTS
     Route: 048
     Dates: start: 20241121
  3. PALFORZIA [Suspect]
     Active Substance: PEANUT
     Dosage: IDE (0.5-6.0MG), ONCE
     Route: 048
     Dates: start: 20240416
  4. PALFORZIA [Suspect]
     Active Substance: PEANUT
     Dosage: FIRST DOSE OF 300 MG
     Route: 048
     Dates: start: 20241009, end: 20241120
  5. PALFORZIA [Suspect]
     Active Substance: PEANUT
     Dosage: DATES OF THERAPY REGIMEN 240MG
     Route: 048
     Dates: start: 20240925, end: 20241008

REACTIONS (3)
  - Cough [Recovered/Resolved]
  - Throat irritation [Recovered/Resolved]
  - Dyspnoea [Recovered/Resolved]

NARRATIVE: CASE EVENT DATE: 20241120
